FAERS Safety Report 8366387-2 (Version None)
Quarter: 2012Q2

REPORT INFORMATION
  Report Type: 
  Country: None (occurrence: None)
  Receive Date: 20120517
  Receipt Date: 20120510
  Transmission Date: 20120825
  Serious: Yes (Hospitalization)
  Sender: FDA-Public Use
  Company Number: FR-PFIZER INC-2012113863

PATIENT
  Age: 31 Year
  Sex: Female

DRUGS (3)
  1. IBUPROFEN + PSEUDOEPHEDRINE HCL [Suspect]
     Dosage: UNK
     Route: 048
     Dates: start: 20111001, end: 20111001
  2. ACETAMINOPHEN [Suspect]
     Dosage: 1 DF, SINGLE
     Route: 048
     Dates: start: 20120101, end: 20120101
  3. AMOXICILLIN TRIHYDRATE [Suspect]
     Dosage: 1 G, 1X/DAY
     Route: 048
     Dates: start: 20111001, end: 20111001

REACTIONS (1)
  - AGRANULOCYTOSIS [None]
